FAERS Safety Report 5425150-2 (Version None)
Quarter: 2007Q3

REPORT INFORMATION
  Report Type: 
  Country: None (occurrence: None)
  Receive Date: 20070824
  Receipt Date: 20070814
  Transmission Date: 20080115
  Serious: Yes (Hospitalization, Disabling, Other)
  Sender: FDA-Public Use
  Company Number: US-JNJFOC-20070803307

PATIENT
  Sex: Female

DRUGS (1)
  1. TOPAMAX [Suspect]
     Indication: HEADACHE
     Route: 048

REACTIONS (9)
  - AMNESIA [None]
  - BLINDNESS [None]
  - DRUG ADMINISTRATION ERROR [None]
  - EYE PAIN [None]
  - FEELING ABNORMAL [None]
  - LOSS OF CONSCIOUSNESS [None]
  - NAUSEA [None]
  - THINKING ABNORMAL [None]
  - VOMITING [None]
